FAERS Safety Report 14871383 (Version 1)
Quarter: 2018Q2

REPORT INFORMATION
  Report Type: Spontaneous
  Country: US (occurrence: US)
  Receive Date: 20180424
  Receipt Date: 20180424
  Transmission Date: 20180711
  Serious: Yes (Hospitalization)
  Sender: FDA-Public Use
  Company Number: None

PATIENT
  Sex: Male

DRUGS (12)
  1. BUPRENORPHINE. [Suspect]
     Active Substance: BUPRENORPHINE
     Indication: DRUG DEPENDENCE
     Dosage: ?          QUANTITY:1 FILM;?
     Route: 060
  2. CLINDAMYCIN. [Concomitant]
     Active Substance: CLINDAMYCIN
  3. MELOXICAM. [Concomitant]
     Active Substance: MELOXICAM
  4. IBUPROFEN. [Concomitant]
     Active Substance: IBUPROFEN
  5. AMLODIPINE [Concomitant]
     Active Substance: AMLODIPINE BESYLATE
  6. ALBUTEROL. [Concomitant]
     Active Substance: ALBUTEROL
  7. ZYRTEC [Concomitant]
     Active Substance: CETIRIZINE HYDROCHLORIDE
  8. BUPROPION. [Concomitant]
     Active Substance: BUPROPION
  9. PREDN ISONE [Concomitant]
  10. UNISOM SLEEPTABS [Concomitant]
     Active Substance: DOXYLAMINE SUCCINATE
  11. GLUCOSAMINE [Concomitant]
     Active Substance: GLUCOSAMINE
  12. VITAMIN B COMPLEX [Concomitant]
     Active Substance: CYANOCOBALAMIN\DEXPANTHENOL\NIACINAMIDE\PYRIDOXINE HYDROCHLORIDE\RIBOFLAVIN 5^-PHOSPHATE SODIUM\THIAMINE HYDROCHLORIDE\VITAMIN B COMPLEX

REACTIONS (3)
  - Gastrooesophageal reflux disease [None]
  - Angioedema [None]
  - Hypersensitivity [None]

NARRATIVE: CASE EVENT DATE: 20180406
